FAERS Safety Report 23545125 (Version 2)
Quarter: 2024Q1

REPORT INFORMATION
  Report Type: Spontaneous
  Country: US (occurrence: US)
  Receive Date: 20240220
  Receipt Date: 20240312
  Transmission Date: 20240410
  Serious: Yes (Hospitalization, Other)
  Sender: FDA-Public Use
  Company Number: US-SCIEGENP-2024SCSPO00050

PATIENT
  Age: 73 Year
  Sex: Female
  Weight: 179 kg

DRUGS (1)
  1. GABAPENTIN [Suspect]
     Active Substance: GABAPENTIN
     Indication: Product used for unknown indication
     Dosage: 9 PILLS A DAY
     Route: 065
     Dates: start: 2023

REACTIONS (10)
  - Suicidal ideation [Recovered/Resolved]
  - Feeling abnormal [Recovered/Resolved]
  - Food refusal [Recovered/Resolved]
  - Impaired work ability [Recovered/Resolved]
  - Hyperhidrosis [Recovered/Resolved]
  - Cold sweat [Recovered/Resolved]
  - Withdrawal syndrome [Recovered/Resolved]
  - Pain [Recovered/Resolved]
  - Insomnia [Recovered/Resolved]
  - Depression [Recovered/Resolved]

NARRATIVE: CASE EVENT DATE: 20230101
